FAERS Safety Report 12408438 (Version 1)
Quarter: 2016Q2

REPORT INFORMATION
  Report Type: Spontaneous
  Country: US (occurrence: US)
  Receive Date: 20160526
  Receipt Date: 20160526
  Transmission Date: 20160815
  Serious: No
  Sender: FDA-Public Use
  Company Number: US-TEVA-661875USA

PATIENT
  Age: 12 Year
  Sex: Male
  Weight: 54.93 kg

DRUGS (1)
  1. DIAMOX SEQUELS [Suspect]
     Active Substance: ACETAZOLAMIDE
     Route: 065

REACTIONS (1)
  - Drug hypersensitivity [Unknown]
